FAERS Safety Report 8819356 (Version 2)
Quarter: 2013Q1

REPORT INFORMATION
  Report Type: Spontaneous
  Country: US (occurrence: US)
  Receive Date: 20121001
  Receipt Date: 20130104
  Transmission Date: 20140127
  Serious: Yes (Other)
  Sender: FDA-Public Use
  Company Number: US-BAYER-2012-101094

PATIENT
  Age: 28 Year
  Sex: Female
  Weight: 58.96 kg

DRUGS (9)
  1. YASMIN [Suspect]
  2. LEVOTHYROXINE [Concomitant]
     Indication: THYROID DISORDER
  3. CLONAZEPAM [Concomitant]
     Indication: ANXIETY
  4. ZOLOFT [Concomitant]
     Indication: DEPRESSION
  5. OMEPRAZOLE [Concomitant]
     Indication: GASTROOESOPHAGEAL REFLUX DISEASE
  6. METOCLOPRAMIDE [Concomitant]
     Indication: NAUSEA
  7. NAPROXEN [Concomitant]
  8. MULTIVITAMIN [Concomitant]
  9. VICODIN [Concomitant]

REACTIONS (11)
  - Cholecystectomy [None]
  - Cholecystitis chronic [None]
  - Injury [None]
  - Scar [None]
  - Abdominal distension [None]
  - Flatulence [None]
  - Dyspepsia [None]
  - Constipation [None]
  - Diarrhoea [None]
  - Anxiety [None]
  - Depression [None]
